FAERS Safety Report 14672715 (Version 2)
Quarter: 2025Q3

REPORT INFORMATION
  Report Type: Report from Study
  Country: EU (occurrence: EU)
  Receive Date: 20180323
  Receipt Date: 20250731
  Transmission Date: 20251020
  Serious: Yes (Hospitalization, Other)
  Sender: AUROBINDO
  Company Number: EU-ACTAVIS-2013-24498

PATIENT
  Age: 64 Year
  Sex: Male

DRUGS (2)
  1. AMOXICILLIN [Suspect]
     Active Substance: AMOXICILLIN
     Indication: Product used for unknown indication
     Route: 065
  2. ACETAMINOPHEN\PROPOXYPHENE [Suspect]
     Active Substance: ACETAMINOPHEN\PROPOXYPHENE
     Indication: Product used for unknown indication
     Route: 065

REACTIONS (8)
  - Acute generalised exanthematous pustulosis [Recovered/Resolved]
  - Acute kidney injury [Recovered/Resolved]
  - C-reactive protein increased [Recovered/Resolved]
  - Renal failure [Recovered/Resolved]
  - Mucosal disorder [Recovered/Resolved]
  - Renal impairment [Recovered/Resolved]
  - Neutrophil count increased [Recovered/Resolved]
  - Blood creatinine abnormal [Recovered/Resolved]
